FAERS Safety Report 13269498 (Version 1)
Quarter: 2017Q1

REPORT INFORMATION
  Report Type: Spontaneous
  Country: US (occurrence: US)
  Receive Date: 20170224
  Receipt Date: 20170224
  Transmission Date: 20170428
  Serious: No
  Sender: FDA-Public Use
  Company Number: US-ASTRAZENECA-2017SE18215

PATIENT
  Age: 56 Year
  Sex: Female

DRUGS (14)
  1. FORXIGA [Suspect]
     Active Substance: DAPAGLIFLOZIN
     Indication: TYPE 2 DIABETES MELLITUS
     Route: 048
     Dates: end: 20170214
  2. COQ10 [Concomitant]
     Active Substance: UBIDECARENONE
  3. MAG OX [Concomitant]
     Active Substance: MAGNESIUM OXIDE
  4. MILK THISTLE [Concomitant]
     Active Substance: MILK THISTLE
  5. LAMISIL [Concomitant]
     Active Substance: TERBINAFINE HYDROCHLORIDE
  6. JANUMET XR [Concomitant]
     Active Substance: METFORMIN HYDROCHLORIDE\SITAGLIPTIN PHOSPHATE
     Dosage: 100/10 MG DAILY
  7. MELOXICAM. [Concomitant]
     Active Substance: MELOXICAM
  8. IBANDRONATE SODIUM. [Concomitant]
     Active Substance: IBANDRONATE SODIUM
  9. EFFEXOR XR [Concomitant]
     Active Substance: VENLAFAXINE HYDROCHLORIDE
  10. FLONASE [Concomitant]
     Active Substance: FLUTICASONE PROPIONATE
     Dosage: AS REQUIRED
  11. CALCIUM + VITAMIN D [Concomitant]
     Active Substance: CALCIUM\VITAMIN D
  12. ZYRTEC [Concomitant]
     Active Substance: CETIRIZINE HYDROCHLORIDE
  13. FOLIC ACID. [Concomitant]
     Active Substance: FOLIC ACID
  14. LISINOPRIL. [Suspect]
     Active Substance: LISINOPRIL
     Route: 048

REACTIONS (1)
  - Fungal infection [Unknown]
